FAERS Safety Report 6149911-X (Version None)
Quarter: 2009Q2

REPORT INFORMATION
  Report Type: 
  Country: None (occurrence: None)
  Receive Date: 20090409
  Receipt Date: 20090331
  Transmission Date: 20091009
  Serious: Yes (Hospitalization)
  Sender: FDA-Public Use
  Company Number: IL-WYE-H08768109

PATIENT
  Sex: Male

DRUGS (16)
  1. SIROLIMUS [Suspect]
     Indication: PROPHYLAXIS AGAINST TRANSPLANT REJECTION
     Route: 048
     Dates: start: 20040422, end: 20040424
  2. SIROLIMUS [Suspect]
     Route: 048
     Dates: start: 20040425, end: 20040513
  3. DACLIZUMAB [Suspect]
     Indication: PROPHYLAXIS AGAINST TRANSPLANT REJECTION
     Dates: start: 20040421, end: 20040505
  4. DACLIZUMAB [Suspect]
     Dates: start: 20040506
  5. TACROLIMUS [Concomitant]
     Indication: PROPHYLAXIS AGAINST TRANSPLANT REJECTION
     Route: 048
     Dates: start: 20040516
  6. PREDNISONE TAB [Concomitant]
     Indication: PROPHYLAXIS AGAINST TRANSPLANT REJECTION
     Dosage: DOSE VARIED BETWEEN 100 MG AND 20 MG DAILY
     Route: 048
     Dates: start: 20040422
  7. LERCANIDIPINE [Concomitant]
     Dosage: UNSPECIFIED
     Dates: start: 20040510
  8. TRIMETHOPRIM [Concomitant]
     Dosage: UNSPECIFIED
     Dates: start: 20040423
  9. OMEPRAZOLE [Concomitant]
     Dosage: UNSPECIFIED
     Dates: start: 20040423
  10. ACYCLOVIR [Concomitant]
     Dosage: UNSPECIFIED
     Dates: start: 20040423
  11. METOPROLOL [Concomitant]
     Dosage: UNSPECIFIED
     Dates: start: 20040423
  12. MYCOPHENOLATE MOFETIL [Suspect]
     Indication: PROPHYLAXIS AGAINST TRANSPLANT REJECTION
     Route: 048
     Dates: start: 20040422, end: 20040512
  13. MYCOPHENOLATE MOFETIL [Suspect]
     Route: 048
     Dates: start: 20040513, end: 20040517
  14. MYCOPHENOLATE MOFETIL [Suspect]
     Route: 048
     Dates: start: 20040518
  15. METHYLPREDNISOLONE 4MG TAB [Concomitant]
     Indication: PROPHYLAXIS AGAINST TRANSPLANT REJECTION
     Route: 048
     Dates: start: 20040422, end: 20040423
  16. METHYLPREDNISOLONE 4MG TAB [Concomitant]
     Route: 042
     Dates: start: 20040428, end: 20040513

REACTIONS (2)
  - OEDEMA [None]
  - SMALL INTESTINAL OBSTRUCTION [None]
